FAERS Safety Report 8425618-0 (Version None)
Quarter: 2012Q2

REPORT INFORMATION
  Report Type: 
  Country: None (occurrence: None)
  Receive Date: 20120611
  Receipt Date: 20120605
  Transmission Date: 20120825
  Serious: Yes (Other)
  Sender: FDA-Public Use
  Company Number: PHEH2012US009198

PATIENT
  Sex: Female
  Weight: 43.084 kg

DRUGS (6)
  1. RECLAST [Suspect]
     Dosage: 5 MG, ONCE A YEAR
     Route: 042
  2. MICARDIS [Concomitant]
     Indication: HYPERTENSION
     Dosage: 40 MG, QD
     Route: 048
  3. CLONAZEPAM [Concomitant]
     Indication: ANXIETY
     Dosage: 0.5 MG, QD
     Route: 048
  4. RECLAST [Suspect]
     Dosage: 5 MG, ONCE A YEAR
     Route: 042
  5. RECLAST [Suspect]
     Dosage: 5 MG, ONCE A YEAR
     Route: 042
  6. RECLAST [Suspect]
     Indication: OSTEOPOROSIS
     Dosage: 5 MG, ONCE A YEAR
     Route: 042
     Dates: start: 20080101

REACTIONS (3)
  - TOOTH FRACTURE [None]
  - INSOMNIA [None]
  - TOOTHACHE [None]
